FAERS Safety Report 6027181-0 (Version None)
Quarter: 2009Q1

REPORT INFORMATION
  Report Type: 
  Country: None (occurrence: None)
  Receive Date: 20090105
  Receipt Date: 20081219
  Transmission Date: 20090719
  Serious: Yes (Hospitalization, Other)
  Sender: FDA-Public Use
  Company Number: JP-PFIZER INC-2008100755

PATIENT
  Age: 60 Year
  Sex: Female

DRUGS (3)
  1. CARBOPLATIN [Suspect]
     Indication: OVARIAN CANCER
     Dates: start: 20011201
  2. CISPLATIN [Suspect]
     Indication: OVARIAN CANCER
     Dates: start: 20010701
  3. PACLITAXEL [Suspect]
     Indication: OVARIAN CANCER
     Dates: start: 20010701

REACTIONS (1)
  - NEUROPATHY PERIPHERAL [None]
